FAERS Safety Report 13785340 (Version 1)
Quarter: 2017Q3

REPORT INFORMATION
  Report Type: Spontaneous
  Country: US (occurrence: US)
  Receive Date: 20170724
  Receipt Date: 20170724
  Transmission Date: 20171127
  Serious: No
  Sender: FDA-Public Use
  Company Number: US-009507513-1707USA004530

PATIENT
  Sex: Female

DRUGS (11)
  1. PROGRAF [Suspect]
     Active Substance: TACROLIMUS\TACROLIMUS ANHYDROUS
     Indication: PROPHYLAXIS AGAINST TRANSPLANT REJECTION
     Dosage: 1.5 MG IN THE MORNING AND 1 MG IN THE EVENING
     Route: 048
     Dates: start: 200712
  2. NOXAFIL [Suspect]
     Active Substance: POSACONAZOLE
     Indication: FUNGAL INFECTION
     Dosage: 300 MG, ONCE DAILY
     Route: 048
     Dates: start: 20170509
  3. TACROLIMUS. [Suspect]
     Active Substance: TACROLIMUS
     Dosage: 0.5 MG, ONCE DAILY
  4. PREDNISONE. [Concomitant]
     Active Substance: PREDNISONE
  5. NOXAFIL [Suspect]
     Active Substance: POSACONAZOLE
     Dosage: 100 MG, ONCE DAILY
     Route: 048
  6. TACROLIMUS. [Suspect]
     Active Substance: TACROLIMUS
     Dosage: UNK
  7. IMURAN [Concomitant]
     Active Substance: AZATHIOPRINE
  8. PROGRAF [Suspect]
     Active Substance: TACROLIMUS\TACROLIMUS ANHYDROUS
     Dosage: 1.5 MG IN THE MORNING AND 0.5 MG IN THE EVENING
     Route: 048
  9. PROGRAF [Suspect]
     Active Substance: TACROLIMUS\TACROLIMUS ANHYDROUS
     Dosage: 0.5 MG, ONCE DAILY
     Route: 048
  10. TACROLIMUS. [Suspect]
     Active Substance: TACROLIMUS
     Indication: PROPHYLAXIS AGAINST TRANSPLANT REJECTION
     Dosage: 1.5 MG IN THE MORNING AND 1 MG IN THE EVENING
  11. TACROLIMUS. [Suspect]
     Active Substance: TACROLIMUS
     Dosage: 1.5 MG IN THE MORNING AND 0.5 MG IN THE EVENING

REACTIONS (17)
  - Forced expiratory volume decreased [Unknown]
  - Asthenia [Unknown]
  - Stomatitis [Unknown]
  - Dyspnoea [Unknown]
  - Chromaturia [Unknown]
  - Faeces discoloured [Unknown]
  - Skin exfoliation [Unknown]
  - Feeling abnormal [Unknown]
  - Immunosuppressant drug level increased [Unknown]
  - Fatigue [Unknown]
  - Headache [Unknown]
  - Oliguria [Unknown]
  - Decreased activity [Unknown]
  - Nausea [Unknown]
  - Feeding disorder [Unknown]
  - Tremor [Unknown]
  - Alopecia [Unknown]

NARRATIVE: CASE EVENT DATE: 2017
